FAERS Safety Report 9838827 (Version 3)
Quarter: 2014Q2

REPORT INFORMATION
  Report Type: Spontaneous
  Country: DK (occurrence: SE)
  Receive Date: 20140123
  Receipt Date: 20140502
  Transmission Date: 20141212
  Serious: Yes (Hospitalization, Other)
  Sender: FDA-Public Use
  Company Number: SE-FRI-1000052984

PATIENT
  Age: 59 Year
  Sex: Male

DRUGS (11)
  1. ESCITALOPRAM [Suspect]
     Indication: DEPRESSION
     Dosage: 5 MG
     Route: 048
  2. TROMBYL [Concomitant]
     Dosage: 75 MG
  3. PLAVIX [Concomitant]
     Dosage: 75 MG
  4. ATACAND [Concomitant]
     Dosage: 8 MG
  5. BISOPROLOL [Concomitant]
     Dosage: 10 MG
  6. SPIRONOLAKTON [Concomitant]
     Dosage: 25 MG
  7. SIMVASTATIN [Concomitant]
     Dosage: 20 MG
  8. MIRTAZAPIN [Concomitant]
     Dosage: 30 MG
  9. OXASCAND [Concomitant]
  10. CORDARONE [Concomitant]
     Dates: start: 201304
  11. METOPROLOL [Concomitant]

REACTIONS (2)
  - Arrhythmia [Not Recovered/Not Resolved]
  - Tachycardia [Not Recovered/Not Resolved]
